FAERS Safety Report 9351195 (Version 1)
Quarter: 2013Q2

REPORT INFORMATION
  Report Type: Spontaneous
  Country: FR (occurrence: FR)
  Receive Date: 20130617
  Receipt Date: 20130617
  Transmission Date: 20140414
  Serious: Yes (Hospitalization)
  Sender: FDA-Public Use
  Company Number: FR-PFIZER INC-2013180164

PATIENT
  Age: 92 Year
  Sex: Female

DRUGS (8)
  1. CORDARONE [Suspect]
     Dosage: UNK
     Route: 048
     Dates: start: 20130521
  2. PRADAXA [Interacting]
     Dosage: 220 MG, TWICE DAILY
     Route: 048
     Dates: start: 20130521, end: 20130523
  3. AMLOR [Concomitant]
     Indication: HYPERTENSION
     Dosage: UNK
     Dates: start: 201305
  4. ARIMIDEX [Concomitant]
     Dosage: UNK
     Dates: start: 201303
  5. TRIMEBUTINE [Concomitant]
     Dosage: UNK
  6. ZOLPIDEM [Concomitant]
     Dosage: UNK
  7. POLYKARAYA [Concomitant]
     Dosage: UNK
  8. SIFROL [Concomitant]
     Indication: RESTLESS LEGS SYNDROME
     Dosage: UNK

REACTIONS (2)
  - Drug interaction [Unknown]
  - Rectal haemorrhage [Recovered/Resolved]
